FAERS Safety Report 18845375 (Version 3)
Quarter: 2021Q1

REPORT INFORMATION
  Report Type: Spontaneous
  Country: US (occurrence: US)
  Receive Date: 20210204
  Receipt Date: 20210223
  Transmission Date: 20210419
  Serious: No
  Sender: FDA-Public Use
  Company Number: US-GLAXOSMITHKLINE-US2021AMR024551

PATIENT
  Age: 77 Year
  Sex: Female

DRUGS (1)
  1. ZEJULA [Suspect]
     Active Substance: NIRAPARIB
     Indication: OVARIAN CANCER
     Dosage: 200 MG, QD WITHOUT FOOD
     Dates: start: 20210120, end: 20210211

REACTIONS (5)
  - Blood pressure increased [Not Recovered/Not Resolved]
  - Carbohydrate antigen 125 increased [Unknown]
  - Nodule [Unknown]
  - Colonoscopy [Unknown]
  - Anxiety [Not Recovered/Not Resolved]

NARRATIVE: CASE EVENT DATE: 202101
